FAERS Safety Report 6190698-2 (Version None)
Quarter: 2009Q2

REPORT INFORMATION
  Report Type: 
  Country: None (occurrence: None)
  Receive Date: 20090514
  Receipt Date: 20090505
  Transmission Date: 20091009
  Serious: Yes (Death, Other)
  Sender: FDA-Public Use
  Company Number: US-PFIZER INC-2009192749

PATIENT
  Age: 57 Year
  Sex: Male
  Weight: 146.96 kg

DRUGS (15)
  1. LYRICA [Suspect]
     Indication: DIABETIC NEUROPATHY
     Dosage: 50 MG, 2X/DAY
     Route: 048
     Dates: start: 20080228, end: 20090318
  2. CRESTOR [Concomitant]
     Dosage: 20 MG, UNK
  3. ZAROXOLYN [Concomitant]
     Dosage: 5 MG, UNK
  4. CLONIDINE [Concomitant]
     Dosage: 0.2 MG, UNK
  5. AMARYL [Concomitant]
     Dosage: 2 MG, UNK
  6. TRICOR [Concomitant]
     Dosage: 145 MG, UNK
  7. HUMULIN R [Concomitant]
  8. HUMALOG MIX [Concomitant]
     Dosage: HUMALOG MIX 75/35
  9. ACTOS [Concomitant]
     Dosage: 45 MG, UNK
  10. LISINOPRIL [Concomitant]
     Dosage: 10 MG, UNK
  11. LASIX [Concomitant]
     Dosage: 40 MG, UNK
  12. VITAMIN B-12 [Concomitant]
  13. POTASSIUM [Concomitant]
  14. MAGNESIUM OXIDE [Concomitant]
     Dosage: 400 MG, UNK
  15. BYETTA [Concomitant]
     Dosage: 5 UG, 2X/DAY

REACTIONS (3)
  - ACUTE MYOCARDIAL INFARCTION [None]
  - BLOOD TRIGLYCERIDES INCREASED [None]
  - GLYCOSYLATED HAEMOGLOBIN INCREASED [None]
